FAERS Safety Report 4691070-4 (Version None)
Quarter: 2005Q2

REPORT INFORMATION
  Report Type: 
  Country: None (occurrence: None)
  Receive Date: 20050610
  Receipt Date: 20050525
  Transmission Date: 20051028
  Serious: Yes (Hospitalization)
  Sender: FDA-Public Use
  Company Number: DSA_26296_2005

PATIENT
  Age: 73 Year
  Sex: Male
  Weight: 45 kg

DRUGS (4)
  1. RENIVACE [Suspect]
     Indication: CARDIAC FAILURE
     Dosage: DF UNK PO
     Route: 048
     Dates: end: 20030705
  2. ALDACTONE [Suspect]
     Indication: CARDIAC FAILURE
     Dosage: DF UNK PO
     Route: 048
     Dates: end: 20030705
  3. DIGOSIN [Suspect]
     Indication: ATRIAL FIBRILLATION
     Dosage: DF UNK PO
     Route: 048
     Dates: end: 20030705
  4. VERAPAMIL [Suspect]
     Indication: ATRIAL FIBRILLATION
     Dosage: DF UNK PO
     Route: 048
     Dates: end: 20030705

REACTIONS (14)
  - ATRIAL FIBRILLATION [None]
  - BLOOD ALDOSTERONE INCREASED [None]
  - BLOOD CHLORIDE DECREASED [None]
  - BLOOD OSMOLARITY DECREASED [None]
  - BLOOD PRESSURE DIASTOLIC DECREASED [None]
  - CARDIAC OUTPUT DECREASED [None]
  - ELECTROCARDIOGRAM ST SEGMENT DEPRESSION [None]
  - HAEMATOCRIT DECREASED [None]
  - INAPPROPRIATE ANTIDIURETIC HORMONE SECRETION [None]
  - LOSS OF CONSCIOUSNESS [None]
  - MALAISE [None]
  - ORTHOSTATIC HYPOTENSION [None]
  - PLATELET COUNT DECREASED [None]
  - RENIN INCREASED [None]
